FAERS Safety Report 7280263-8 (Version None)
Quarter: 2011Q1

REPORT INFORMATION
  Report Type: 
  Country: None (occurrence: None)
  Receive Date: 20110208
  Receipt Date: 20101123
  Transmission Date: 20110831
  Serious: Yes (Hospitalization)
  Sender: FDA-Public Use
  Company Number: US-BAYER-201029614NA

PATIENT
  Sex: Female
  Weight: 59 kg

DRUGS (7)
  1. YAZ [Suspect]
     Dates: start: 20040301, end: 20040901
  2. YASMIN [Suspect]
     Indication: CONTRACEPTION
     Dosage: UNK UNK, QD
     Dates: start: 20040301, end: 20040901
  3. ANTIMIGRAINE PREPARATIONS [Concomitant]
  4. ADVIL [Concomitant]
     Dosage: UNK
     Dates: start: 20041201
  5. ANTIBIOTICS [Concomitant]
  6. DIFLUCAN [Concomitant]
     Dosage: 150 MG, UNK
     Dates: start: 20040819
  7. ADVIL [Concomitant]
     Dosage: UNK
     Dates: start: 20040101

REACTIONS (10)
  - PULMONARY INFARCTION [None]
  - CHEST DISCOMFORT [None]
  - PULMONARY EMBOLISM [None]
  - THROMBOSIS [None]
  - PLEURAL EFFUSION [None]
  - LUNG INFILTRATION [None]
  - HYPERCOAGULATION [None]
  - CHEST PAIN [None]
  - DYSPNOEA [None]
  - MUSCULOSKELETAL CHEST PAIN [None]
